FAERS Safety Report 20733571 (Version 1)
Quarter: 2022Q2

REPORT INFORMATION
  Report Type: Spontaneous
  Country: GB (occurrence: GB)
  Receive Date: 20220421
  Receipt Date: 20220421
  Transmission Date: 20220721
  Serious: Yes (Hospitalization, Other)
  Sender: FDA-Public Use
  Company Number: GB-CELLTRION INC.-2022GB004743

PATIENT

DRUGS (3)
  1. INFLIXIMAB [Suspect]
     Active Substance: INFLIXIMAB
     Indication: Crohn^s disease
     Dosage: 120 MG
     Route: 058
  2. INFLIXIMAB [Suspect]
     Active Substance: INFLIXIMAB
     Indication: Colitis ulcerative
  3. INFLIXIMAB [Suspect]
     Active Substance: INFLIXIMAB
     Indication: Inflammatory bowel disease

REACTIONS (10)
  - Crohn^s disease [Unknown]
  - Colitis ulcerative [Unknown]
  - Neuropathy peripheral [Unknown]
  - Condition aggravated [Unknown]
  - Anorectal disorder [Unknown]
  - Drug specific antibody present [Unknown]
  - Rash [Unknown]
  - Injection site reaction [Unknown]
  - Drug level below therapeutic [Unknown]
  - Off label use [Unknown]
